FAERS Safety Report 7056154-4 (Version None)
Quarter: 2010Q4

REPORT INFORMATION
  Report Type: 
  Country: None (occurrence: None)
  Receive Date: 20101018
  Receipt Date: 20100923
  Transmission Date: 20110411
  Serious: No
  Sender: FDA-Public Use
  Company Number: 2010-00865

PATIENT
  Age: 23 Year
  Sex: Male
  Weight: 72.5755 kg

DRUGS (1)
  1. ZICAM COLD REMEDY PLUS LIQUI-LOZ [Suspect]
     Dosage: QID X 12 DAYS
     Dates: start: 20100910, end: 20100921

REACTIONS (1)
  - AGEUSIA [None]
